FAERS Safety Report 16677200 (Version 2)
Quarter: 2019Q3

REPORT INFORMATION
  Report Type: Spontaneous
  Country: PL (occurrence: PL)
  Receive Date: 20190807
  Receipt Date: 20190809
  Transmission Date: 20191004
  Serious: Yes (Other)
  Sender: FDA-Public Use
  Company Number: PL-JNJFOC-20190803741

PATIENT
  Age: 27 Year
  Sex: Male
  Weight: 120 kg

DRUGS (4)
  1. HALOPERIDOL. [Suspect]
     Active Substance: HALOPERIDOL
     Indication: PSYCHOTIC DISORDER
  2. CLOPIXOL (DEPOT) [Suspect]
     Active Substance: ZUCLOPENTHIXOL
     Indication: PSYCHOTIC DISORDER
  3. HALOPERIDOL. [Suspect]
     Active Substance: HALOPERIDOL
     Indication: EPILEPSY
     Dosage: DOSE UNKNOWN, MEDICATION TAKEN FOR 3 WEEKS
     Route: 042
  4. CLOPIXOL (DEPOT) [Suspect]
     Active Substance: ZUCLOPENTHIXOL
     Indication: EPILEPSY
     Dosage: DOSE UNKNOWN, MEDICATION TAKEN FOR 3 WEEKS
     Route: 042

REACTIONS (7)
  - Posture abnormal [Recovering/Resolving]
  - Gaze palsy [Recovering/Resolving]
  - Fall [Recovering/Resolving]
  - Dizziness [Recovering/Resolving]
  - Head titubation [Recovering/Resolving]
  - Insomnia [Recovering/Resolving]
  - Asthenia [Recovering/Resolving]
